FAERS Safety Report 15550995 (Version 1)
Quarter: 2018Q4

REPORT INFORMATION
  Report Type: Spontaneous
  Country: JP (occurrence: JP)
  Receive Date: 20181025
  Receipt Date: 20181025
  Transmission Date: 20190205
  Serious: Yes (Other)
  Sender: FDA-Public Use
  Company Number: JP-JNJFOC-20181035279

PATIENT
  Sex: Male
  Weight: 75 kg

DRUGS (1)
  1. XARELTO [Suspect]
     Active Substance: RIVAROXABAN
     Indication: PRODUCT USED FOR UNKNOWN INDICATION
     Route: 048

REACTIONS (6)
  - Incorrect dose administered [Unknown]
  - Renal impairment [Unknown]
  - Fall [Unknown]
  - Product monitoring error [Unknown]
  - Weight decreased [Unknown]
  - Subdural haemorrhage [Unknown]
